FAERS Safety Report 4266053-9 (Version None)
Quarter: 2004Q1

REPORT INFORMATION
  Report Type: 
  Country: None (occurrence: None)
  Receive Date: 20040106
  Receipt Date: 20031223
  Transmission Date: 20041129
  Serious: Yes (Other)
  Sender: FDA-Public Use
  Company Number: 200323092GDDC

PATIENT
  Age: 26 Year
  Sex: Female
  Weight: 60 kg

DRUGS (1)
  1. LANTUS [Suspect]
     Indication: DIABETES MELLITUS
     Dosage: 40 U SC
     Route: 058
     Dates: start: 20030714, end: 20031118

REACTIONS (3)
  - ASTHENIA [None]
  - LETHARGY [None]
  - MYALGIA [None]
